FAERS Safety Report 6489514-0 (Version None)
Quarter: 2009Q4

REPORT INFORMATION
  Report Type: 
  Country: None (occurrence: None)
  Receive Date: 20091210
  Receipt Date: 20091019
  Transmission Date: 20100525
  Serious: No
  Sender: FDA-Public Use
  Company Number: US-AMGEN-KDL367491

PATIENT
  Sex: Male
  Weight: 54.6 kg

DRUGS (1)
  1. ENBREL [Suspect]
     Indication: JUVENILE ARTHRITIS
     Route: 058

REACTIONS (4)
  - ARTHRALGIA [None]
  - ARTHRITIS [None]
  - INJECTION SITE PAIN [None]
  - LABORATORY TEST ABNORMAL [None]
